FAERS Safety Report 21292625 (Version 2)
Quarter: 2022Q4

REPORT INFORMATION
  Report Type: Spontaneous
  Country: IT (occurrence: IT)
  Receive Date: 20220905
  Receipt Date: 20221001
  Transmission Date: 20230113
  Serious: Yes (Hospitalization)
  Sender: FDA-Public Use
  Company Number: None

PATIENT
  Age: 31 Year
  Sex: Female
  Weight: 61 kg

DRUGS (3)
  1. DOXORUBICIN HYDROCHLORIDE [Suspect]
     Active Substance: DOXORUBICIN HYDROCHLORIDE
     Indication: Neoadjuvant therapy
     Dosage: UNIT DOSE :  112MG,  DURATION : 63 DAYS
     Route: 065
     Dates: start: 20220516, end: 20220718
  2. VINCRISTINE [Suspect]
     Active Substance: VINCRISTINE
     Indication: Neoadjuvant therapy
     Dosage: UNIT DOSE : 2 MG ,  DURATION :63 DAYS
     Route: 065
     Dates: start: 20220516, end: 20220718
  3. CYCLOPHOSPHAMIDE [Suspect]
     Active Substance: CYCLOPHOSPHAMIDE
     Indication: Neoadjuvant therapy
     Dosage: UNIT DOSE : 1800 MG, DURATION :63 DAYS
     Route: 065
     Dates: start: 20220516, end: 20220718

REACTIONS (3)
  - Neutropenia [Recovering/Resolving]
  - Thrombocytopenia [Recovering/Resolving]
  - Anaemia [Recovered/Resolved]

NARRATIVE: CASE EVENT DATE: 20220727
